FAERS Safety Report 6425072-4 (Version None)
Quarter: 2009Q4

REPORT INFORMATION
  Report Type: 
  Country: None (occurrence: None)
  Receive Date: 20091103
  Receipt Date: 20091022
  Transmission Date: 20100525
  Serious: Yes (Other)
  Sender: FDA-Public Use
  Company Number: ES-CELGENEUS-144-21880-09101836

PATIENT
  Age: 78 Year
  Sex: Female

DRUGS (4)
  1. REVLIMID [Suspect]
     Indication: MULTIPLE MYELOMA
     Route: 048
  2. DEXAMETHASONE [Suspect]
     Indication: MULTIPLE MYELOMA
     Route: 065
  3. DEXAMETHASONE [Suspect]
     Route: 065
  4. ACETYLSALICYLIC ACID [Concomitant]
     Indication: PROPHYLAXIS
     Route: 048

REACTIONS (3)
  - HAEMATOTOXICITY [None]
  - RETINAL HAEMORRHAGE [None]
  - THROMBOCYTOPENIA [None]
